FAERS Safety Report 13536502 (Version 2)
Quarter: 2017Q3

REPORT INFORMATION
  Report Type: Report from Study
  Country: None (occurrence: CA)
  Receive Date: 20170511
  Receipt Date: 20170712
  Transmission Date: 20171127
  Serious: Yes (Death, Other)
  Sender: FDA-Public Use
  Company Number: CA-ABBVIE-17P-028-1966455-00

PATIENT
  Age: 79 Year
  Sex: Male
  Weight: 79.45 kg

DRUGS (2)
  1. ALLOPURINOL. [Concomitant]
     Active Substance: ALLOPURINOL
     Indication: PRODUCT USED FOR UNKNOWN INDICATION
  2. VENETOCLAX. [Suspect]
     Active Substance: VENETOCLAX
     Indication: CHRONIC LYMPHOCYTIC LEUKAEMIA
     Route: 048
     Dates: start: 20170427

REACTIONS (9)
  - Haemorrhagic stroke [Fatal]
  - Pulmonary oedema [Unknown]
  - Hypophagia [Not Recovered/Not Resolved]
  - Chronic lymphocytic leukaemia [Fatal]
  - Haemoglobin decreased [Unknown]
  - Dyspnoea [Unknown]
  - Oedema [Unknown]
  - Diverticulitis [Unknown]
  - Abdominal distension [Not Recovered/Not Resolved]

NARRATIVE: CASE EVENT DATE: 20170509
